FAERS Safety Report 19889906 (Version 6)
Quarter: 2025Q1

REPORT INFORMATION
  Report Type: Report from Study
  Country: CO (occurrence: CO)
  Receive Date: 20210928
  Receipt Date: 20250312
  Transmission Date: 20250409
  Serious: Yes (Disabling)
  Sender: SANOFI AVENTIS
  Company Number: CO-SA-SAC20210923001006

PATIENT
  Age: 57 Year
  Sex: Female
  Weight: 63 kg

DRUGS (12)
  1. TERIFLUNOMIDE [Suspect]
     Active Substance: TERIFLUNOMIDE
     Indication: Multiple sclerosis
     Dosage: 14 MG, QD
     Route: 048
     Dates: start: 20160603
  2. AMLODIPINE [Concomitant]
     Active Substance: AMLODIPINE BESYLATE
     Indication: Hypertension
     Dosage: 1 DF, QD
     Route: 048
  3. METOPROLOL [Concomitant]
     Active Substance: METOPROLOL
     Indication: Hypertension
     Dosage: 1 DF, QD
     Route: 048
  4. LOSARTAN [Concomitant]
     Active Substance: LOSARTAN
     Indication: Hypertension
     Dosage: 1 DF, BID
     Route: 048
  5. LOSARTAN [Concomitant]
     Active Substance: LOSARTAN
     Dosage: 1 DF, QD
     Route: 048
  6. EMPAGLIFLOZIN [Concomitant]
     Active Substance: EMPAGLIFLOZIN
     Indication: Type 2 diabetes mellitus
     Dosage: 25 MG, QD
     Route: 048
  7. INSULIN NOS [Concomitant]
     Active Substance: INSULIN NOS
     Indication: Type 2 diabetes mellitus
     Dosage: 30 IU, Q12H
     Route: 058
  8. ROSUVASTATIN [Concomitant]
     Active Substance: ROSUVASTATIN
     Indication: Blood cholesterol increased
     Dosage: 40 MG, QD
     Route: 048
  9. ROSUVASTATIN [Concomitant]
     Active Substance: ROSUVASTATIN
     Indication: Blood triglycerides increased
  10. REPATHA [Concomitant]
     Active Substance: EVOLOCUMAB
     Indication: Blood cholesterol increased
     Dosage: 140 MG, QOW
  11. REPATHA [Concomitant]
     Active Substance: EVOLOCUMAB
     Indication: Blood triglycerides increased
  12. LANTUS SOLOSTAR [Concomitant]
     Active Substance: INSULIN GLARGINE
     Indication: Type 2 diabetes mellitus
     Dosage: 30 IU, QD
     Route: 058
     Dates: start: 202407

REACTIONS (13)
  - Limb immobilisation [Recovered/Resolved]
  - Hypoaesthesia [Not Recovered/Not Resolved]
  - Spinal pain [Recovering/Resolving]
  - Stress [Recovered/Resolved]
  - Road traffic accident [Recovered/Resolved]
  - Joint injury [Recovered/Resolved]
  - Blood glucose increased [Recovered/Resolved]
  - Pain in extremity [Not Recovered/Not Resolved]
  - Neck pain [Recovered/Resolved]
  - Arthralgia [Recovering/Resolving]
  - Osteoarthritis [Not Recovered/Not Resolved]
  - Nerve block [Recovered/Resolved]
  - Tendonitis [Unknown]

NARRATIVE: CASE EVENT DATE: 20210918
